FAERS Safety Report 7528901-6 (Version None)
Quarter: 2011Q2

REPORT INFORMATION
  Report Type: 
  Country: None (occurrence: None)
  Receive Date: 20110607
  Receipt Date: 20110526
  Transmission Date: 20111010
  Serious: Yes (Hospitalization)
  Sender: FDA-Public Use
  Company Number: JP-SANOFI-AVENTIS-2011SA026028

PATIENT
  Age: 66 Year
  Sex: Female

DRUGS (15)
  1. FAMOTIDINE [Suspect]
     Route: 048
     Dates: start: 20110321, end: 20110414
  2. FAMOTIDINE [Suspect]
     Dates: start: 20110316, end: 20110316
  3. KETOPROFEN [Concomitant]
     Dates: start: 20110225
  4. NEUROTROPIN [Concomitant]
     Dates: start: 20110407, end: 20110416
  5. LOXONIN [Concomitant]
     Route: 048
     Dates: start: 20110314
  6. SELBEX [Concomitant]
     Indication: PROPHYLAXIS AGAINST GASTROINTESTINAL ULCER
     Route: 048
     Dates: start: 20110314
  7. FERROUS CITRATE [Concomitant]
     Indication: ANAEMIA
     Route: 048
     Dates: start: 20110225
  8. ZOLPIDEM [Suspect]
     Route: 048
     Dates: start: 20110315
  9. CELECOXIB [Suspect]
     Route: 048
     Dates: start: 20110321, end: 20110414
  10. NORVASC [Concomitant]
     Indication: HYPERTENSION
     Route: 048
     Dates: start: 20110314
  11. ENOXAPARIN SODIUM [Concomitant]
     Dates: start: 20110317, end: 20110322
  12. CEFOTIAM HYDROCHLORIDE [Suspect]
     Indication: INFECTION PROPHYLAXIS
     Route: 041
     Dates: start: 20110316, end: 20110424
  13. METHYCOBAL [Concomitant]
     Route: 048
     Dates: start: 20110406
  14. VOLTAREN [Concomitant]
     Route: 054
     Dates: start: 20110321, end: 20110322
  15. FLOMAX [Concomitant]
     Indication: INFECTION PROPHYLAXIS
     Route: 048
     Dates: start: 20110403, end: 20110427

REACTIONS (4)
  - HEPATIC ENZYME INCREASED [None]
  - CHOLESTASIS [None]
  - PANCYTOPENIA [None]
  - POST PROCEDURAL INFECTION [None]
